FAERS Safety Report 24980277 (Version 1)
Quarter: 2025Q1

REPORT INFORMATION
  Report Type: Spontaneous
  Country: US (occurrence: None)
  Receive Date: 20250214
  Receipt Date: 20250214
  Transmission Date: 20250409
  Serious: Yes (Other)
  Sender: FDA-CTU
  Company Number: None

PATIENT
  Age: 80 Year
  Sex: Female
  Weight: 70.31 kg

DRUGS (23)
  1. MUPIROCIN [Suspect]
     Active Substance: MUPIROCIN
     Indication: Infection prophylaxis
     Dosage: OTHER QUANTITY : SMALL DAB TO EACH NOSTRIL ;?FREQUENCY : TWICE A DAY;?
     Route: 045
     Dates: start: 20250110, end: 20250114
  2. AMLODIPINE [Concomitant]
     Active Substance: AMLODIPINE BESYLATE
  3. BASAGLAR [Concomitant]
     Active Substance: INSULIN GLARGINE
  4. EZETIMIBE [Suspect]
     Active Substance: EZETIMIBE
  5. LOSARTAN [Concomitant]
     Active Substance: LOSARTAN
  6. METFORMIN [Concomitant]
     Active Substance: METFORMIN HYDROCHLORIDE
  7. NATEGLINIDE [Concomitant]
     Active Substance: NATEGLINIDE
  8. SIMVASTATIN [Concomitant]
     Active Substance: SIMVASTATIN
  9. TRAZODONE [Concomitant]
     Active Substance: TRAZODONE HYDROCHLORIDE
  10. MUPIROCIN [Concomitant]
     Active Substance: MUPIROCIN
  11. ACETAMINOPHEN PRN [Concomitant]
  12. ASPIRIN [Concomitant]
     Active Substance: ASPIRIN
  13. CALCIUM [Concomitant]
     Active Substance: CALCIUM
  14. VITAMIN D3 [Concomitant]
     Active Substance: CHOLECALCIFEROL
  15. COENZYME Q10 [Concomitant]
     Active Substance: DIETARY SUPPLEMENT\UBIDECARENONE
  16. VITAMIN B12 [Concomitant]
     Active Substance: CYANOCOBALAMIN
  17. FLUTICASONE [Concomitant]
     Active Substance: FLUTICASONE
  18. FOLIC AID [Concomitant]
  19. PROBIOTICS NOS [Concomitant]
     Active Substance: PROBIOTICS NOS
  20. MAGNESIUM [Concomitant]
     Active Substance: MAGNESIUM
  21. VITAMINS [Concomitant]
     Active Substance: VITAMINS
  22. OMEGA-3 ACIDS [Concomitant]
     Active Substance: OMEGA-3 FATTY ACIDS
  23. HERBALS\TURMERIC [Concomitant]
     Active Substance: HERBALS\TURMERIC

REACTIONS (4)
  - Hallucination, visual [None]
  - Dizziness [None]
  - Imperception [None]
  - Ophthalmic migraine [None]

NARRATIVE: CASE EVENT DATE: 20250116
